FAERS Safety Report 5342629-2 (Version None)
Quarter: 2007Q2

REPORT INFORMATION
  Report Type: 
  Country: None (occurrence: None)
  Receive Date: 20070601
  Receipt Date: 20070524
  Transmission Date: 20071010
  Serious: Yes (Other)
  Sender: FDA-Public Use
  Company Number: US-BOEHRINGER INGELHEIM PHARMACEUTICALS, INC.-2007-DE-03075GD

PATIENT

DRUGS (4)
  1. DIPYRIDAMOLE [Suspect]
     Indication: PANCREATIC CARCINOMA NON-RESECTABLE
     Route: 048
  2. LEUCOVORIN CALCIUM [Suspect]
     Indication: PANCREATIC CARCINOMA NON-RESECTABLE
     Route: 042
  3. FLUOROURACIL [Suspect]
     Indication: PANCREATIC CARCINOMA NON-RESECTABLE
     Route: 042
  4. MITOMYCIN [Suspect]
     Indication: PANCREATIC CARCINOMA NON-RESECTABLE
     Dosage: UP TO FOUR DOSES, EACH DOSE NOT TO EXCEED 15 MG, AND THE TOTAL CUMULATIVE DOSE OF MITOMYCIN WAS NOT
     Route: 042

REACTIONS (1)
  - BLOOD BILIRUBIN INCREASED [None]
